FAERS Safety Report 4427424-0 (Version None)
Quarter: 2004Q3

REPORT INFORMATION
  Report Type: 
  Country: None (occurrence: None)
  Receive Date: 20040812
  Receipt Date: 20040730
  Transmission Date: 20050211
  Serious: Yes (Death)
  Sender: FDA-Public Use
  Company Number: 2004052359

PATIENT
  Age: 66 Year
  Sex: Female

DRUGS (1)
  1. ZYRTEC [Suspect]
     Indication: DERMATITIS
     Dosage: 10 MG (1 IN 1 D), ORAL
     Route: 048
     Dates: start: 20040403, end: 20040403

REACTIONS (2)
  - CEREBROVASCULAR ACCIDENT [None]
  - HEPATIC CIRRHOSIS [None]
